FAERS Safety Report 24552200 (Version 1)
Quarter: 2024Q4

REPORT INFORMATION
  Report Type: Spontaneous
  Country: TW (occurrence: TW)
  Receive Date: 20241026
  Receipt Date: 20241026
  Transmission Date: 20250114
  Serious: Yes (Other)
  Sender: ROCHE
  Company Number: TW-002147023-NVSC2024TW198585

PATIENT
  Age: 46 Year
  Sex: Male

DRUGS (1)
  1. XOLAIR [Suspect]
     Active Substance: OMALIZUMAB
     Indication: Asthma
     Dosage: 150 MG (STAT)
     Route: 050
     Dates: start: 20240808, end: 20240808

REACTIONS (1)
  - Chronic hepatitis B [Recovering/Resolving]

NARRATIVE: CASE EVENT DATE: 20240913
